FAERS Safety Report 9222378 (Version 1)
Quarter: 2013Q1

REPORT INFORMATION
  Report Type: Spontaneous
  Country: US (occurrence: None)
  Receive Date: 20120914
  Receipt Date: 20120914
  Transmission Date: 20140127
  Serious: Yes (Other)
  Sender: FDA-Public Use
  Company Number: JPI-P-016475

PATIENT
  Age: 30 Year
  Sex: Female

DRUGS (1)
  1. XYREM ?(500 MILLIGRAM/MILLILITERS, SOLUTION)(SODIUM OXYBATE) [Suspect]
     Indication: NARCOLEPSY
     Dosage: 6 GM ( 3 GM, 2 IN 1 D), ORAL
     Route: 048
     Dates: start: 20091005

REACTIONS (1)
  - Depression [None]
